FAERS Safety Report 25011232 (Version 1)
Quarter: 2025Q1

REPORT INFORMATION
  Report Type: Spontaneous
  Country: US (occurrence: US)
  Receive Date: 20250226
  Receipt Date: 20250226
  Transmission Date: 20250408
  Serious: No
  Sender: CHATTEM
  Company Number: US-OPELLA-2025OHG005072

PATIENT
  Sex: Male

DRUGS (1)
  1. ALLEGRA ALLERGY [Suspect]
     Active Substance: FEXOFENADINE HYDROCHLORIDE
     Indication: Upper-airway cough syndrome

REACTIONS (2)
  - Product use in unapproved indication [Unknown]
  - No adverse event [Unknown]
